FAERS Safety Report 7244542-2 (Version None)
Quarter: 2011Q1

REPORT INFORMATION
  Report Type: 
  Country: None (occurrence: None)
  Receive Date: 20110125
  Receipt Date: 20110119
  Transmission Date: 20110831
  Serious: Yes (Other)
  Sender: FDA-Public Use
  Company Number: US-PFIZER INC-2011013707

PATIENT
  Sex: Female
  Weight: 99.773 kg

DRUGS (5)
  1. ZOLOFT [Suspect]
     Indication: DEPRESSION
     Dosage: 100 MG, 1X/DAY
     Route: 048
  2. CHOLESTYRAMINE RESIN [Concomitant]
  3. CHANTIX [Suspect]
     Indication: SMOKING CESSATION THERAPY
     Dosage: 0.5 MG, DAILY
     Route: 048
     Dates: start: 20110113
  4. XANAX [Suspect]
     Indication: ANXIETY
     Dosage: 1 MG, 3X/DAY
     Route: 048
     Dates: start: 19950101
  5. POTASSIUM [Concomitant]
     Dosage: 120 MG, 2X/DAY

REACTIONS (3)
  - SUICIDAL IDEATION [None]
  - CHOLELITHIASIS [None]
  - HYPERTENSION [None]
